FAERS Safety Report 9399871 (Version 1)
Quarter: 2013Q3

REPORT INFORMATION
  Report Type: Spontaneous
  Country: IT (occurrence: IT)
  Receive Date: 20130715
  Receipt Date: 20130715
  Transmission Date: 20140515
  Serious: Yes (Hospitalization)
  Sender: FDA-Public Use
  Company Number: PHHY2013IT074387

PATIENT
  Sex: Male

DRUGS (6)
  1. ACLASTA [Suspect]
     Indication: OSTEOPOROSIS
     Dosage: 5 MG, UNK
     Route: 042
     Dates: start: 20130508
  2. CALCIUM CARBONATE [Concomitant]
     Dosage: 500 MG, UNK
     Route: 048
     Dates: start: 20120101, end: 20130508
  3. DIDROGYL [Concomitant]
     Dosage: 3 DROPS (1.5MG/10 ML)
     Route: 048
     Dates: start: 20120101, end: 20130508
  4. XATRAL [Concomitant]
     Dosage: 1 DF, UNK
     Route: 048
     Dates: start: 20120101, end: 20130508
  5. KALETRA [Concomitant]
     Dosage: 2 DF, UNK
     Route: 048
     Dates: start: 20120101, end: 20130508
  6. EPIVIR [Concomitant]
     Dosage: 1 DF, UNK
     Route: 048
     Dates: start: 20120101, end: 20130508

REACTIONS (7)
  - Scrotal pain [Recovering/Resolving]
  - Scrotal swelling [Recovering/Resolving]
  - Pyrexia [Recovering/Resolving]
  - Asthenia [Recovering/Resolving]
  - Arthralgia [Recovering/Resolving]
  - Oedema peripheral [Recovering/Resolving]
  - Pain [Recovering/Resolving]
